FAERS Safety Report 25950902 (Version 2)
Quarter: 2025Q4

REPORT INFORMATION
  Report Type: Spontaneous
  Country: EU (occurrence: EU)
  Receive Date: 20251023
  Receipt Date: 20251024
  Transmission Date: 20260117
  Serious: Yes (Death)
  Sender: ABBVIE
  Company Number: EU-ABBVIE-6512875

PATIENT
  Sex: Female

DRUGS (1)
  1. MIRVETUXIMAB SORAVTANSINE-GYNX [Suspect]
     Active Substance: MIRVETUXIMAB SORAVTANSINE-GYNX
     Indication: Ovarian cancer
     Route: 042

REACTIONS (1)
  - Death [Fatal]
